FAERS Safety Report 7202541-0 (Version None)
Quarter: 2010Q4

REPORT INFORMATION
  Report Type: 
  Country: None (occurrence: None)
  Receive Date: 20101229
  Receipt Date: 20101222
  Transmission Date: 20110411
  Serious: Yes (Disabling, Other)
  Sender: FDA-Public Use
  Company Number: GB-MERCK-1012USA03622

PATIENT
  Age: 50 Year

DRUGS (3)
  1. DECADRON [Suspect]
     Route: 048
  2. REVLIMID [Suspect]
     Indication: MULTIPLE MYELOMA
     Route: 065
     Dates: end: 20101124
  3. WARFARIN [Suspect]
     Route: 065

REACTIONS (1)
  - DYSPNOEA [None]
